FAERS Safety Report 10423434 (Version 1)
Quarter: 2014Q3

REPORT INFORMATION
  Report Type: Spontaneous
  Country: IT (occurrence: IT)
  Receive Date: 20140902
  Receipt Date: 20140902
  Transmission Date: 20150326
  Serious: Yes (Death, Other)
  Sender: FDA-Public Use
  Company Number: IT-JNJFOC-20140823375

PATIENT

DRUGS (8)
  1. OLAPARIB [Suspect]
     Active Substance: OLAPARIB
     Indication: BREAST CANCER
     Dosage: ON DAY 1
     Route: 065
  2. DOXORUBICIN HYDROCHLORIDE. [Suspect]
     Active Substance: DOXORUBICIN HYDROCHLORIDE
     Indication: BREAST CANCER
     Route: 042
  3. OLAPARIB [Suspect]
     Active Substance: OLAPARIB
     Indication: LUNG CANCER METASTATIC
     Dosage: FOR 7 DAYS
     Route: 065
  4. OLAPARIB [Suspect]
     Active Substance: OLAPARIB
     Indication: BREAST CANCER
     Dosage: FOR 7 DAYS
     Route: 065
  5. OLAPARIB [Suspect]
     Active Substance: OLAPARIB
     Indication: BREAST CANCER
     Route: 065
  6. DOXORUBICIN HYDROCHLORIDE. [Suspect]
     Active Substance: DOXORUBICIN HYDROCHLORIDE
     Indication: LUNG CANCER METASTATIC
     Route: 042
  7. OLAPARIB [Suspect]
     Active Substance: OLAPARIB
     Indication: LUNG CANCER METASTATIC
     Route: 065
  8. OLAPARIB [Suspect]
     Active Substance: OLAPARIB
     Indication: LUNG CANCER METASTATIC
     Dosage: ON DAY 1
     Route: 065

REACTIONS (4)
  - Stomatitis [Unknown]
  - Pneumonia [Fatal]
  - Pneumonitis [Fatal]
  - Incorrect dose administered [Unknown]
